FAERS Safety Report 9735807 (Version 2)
Quarter: 2013Q4

REPORT INFORMATION
  Report Type: Spontaneous
  Country: US (occurrence: US)
  Receive Date: 20131206
  Receipt Date: 20131206
  Transmission Date: 20140711
  Serious: No
  Sender: FDA-Public Use
  Company Number: US-GILEAD-2009-0023087

PATIENT
  Sex: Female
  Weight: 124.28 kg

DRUGS (11)
  1. LETAIRIS [Suspect]
     Indication: PULMONARY ARTERIAL HYPERTENSION
     Route: 048
     Dates: start: 20090424
  2. CLONIDINE HCL [Concomitant]
  3. CENTRUM SILVER [Concomitant]
  4. PLAQUENIL [Concomitant]
  5. HYDROMORPHONE HCL [Concomitant]
  6. NORVASC [Concomitant]
  7. GABAPENTIN [Concomitant]
  8. LISINOPRIL [Concomitant]
  9. AMRIX [Concomitant]
  10. HYDROCHLOROTHIAZIDE [Concomitant]
  11. PREDNISONE [Concomitant]

REACTIONS (6)
  - Back pain [Unknown]
  - Amnesia [Unknown]
  - Fatigue [Unknown]
  - Dyspnoea [Unknown]
  - Constipation [Unknown]
  - Abdominal pain upper [Unknown]
